FAERS Safety Report 7464241-1 (Version None)
Quarter: 2011Q2

REPORT INFORMATION
  Report Type: 
  Country: None (occurrence: None)
  Receive Date: 20110506
  Receipt Date: 20110503
  Transmission Date: 20111010
  Serious: Yes (Life-Threatening)
  Sender: FDA-Public Use
  Company Number: US-GENENTECH-316159

PATIENT
  Sex: Female
  Weight: 83.447 kg

DRUGS (1)
  1. XOLAIR [Suspect]
     Indication: ASTHMA
     Dosage: 375 MG, Q2W
     Dates: start: 20110221, end: 20110315

REACTIONS (2)
  - ANAPHYLACTIC REACTION [None]
  - RASH [None]
